FAERS Safety Report 19629637 (Version 1)
Quarter: 2021Q3

REPORT INFORMATION
  Report Type: Spontaneous
  Country: TR (occurrence: TR)
  Receive Date: 20210728
  Receipt Date: 20210728
  Transmission Date: 20211014
  Serious: Yes (Other)
  Sender: FDA-Public Use
  Company Number: TR-LUPIN PHARMACEUTICALS INC.-2021-13096

PATIENT
  Age: 62 Year
  Sex: Female

DRUGS (6)
  1. PREDNISONE. [Suspect]
     Active Substance: PREDNISONE
     Indication: CEREBELLAR ATAXIA
     Dosage: 1 GRAM, QD (FOR 5 DAYS)
     Route: 065
  2. IMMUNOGLOBULIN (IMMUNOGLOBULIN HUMAN NORMAL) [Suspect]
     Active Substance: HUMAN IMMUNOGLOBULIN G
     Indication: ANTI-GAD ANTIBODY POSITIVE
     Dosage: 400 MILLIGRAM/KILOGRAM, QD (FOR 1 DAY)
     Route: 042
  3. METHYLPREDNISOLONE. [Suspect]
     Active Substance: METHYLPREDNISOLONE
     Indication: CEREBELLAR ATAXIA
  4. PREDNISONE. [Suspect]
     Active Substance: PREDNISONE
     Indication: ANTI-GAD ANTIBODY POSITIVE
     Dosage: 1 GRAM, QD (FOR 1 DAYS)
     Route: 065
  5. IMMUNOGLOBULIN (IMMUNOGLOBULIN HUMAN NORMAL) [Suspect]
     Active Substance: HUMAN IMMUNOGLOBULIN G
     Indication: CEREBELLAR ATAXIA
     Dosage: 400 MILLIGRAM/KILOGRAM, QD (FOR 5 DAYS)
     Route: 042
  6. METHYLPREDNISOLONE. [Suspect]
     Active Substance: METHYLPREDNISOLONE
     Indication: ANTI-GAD ANTIBODY POSITIVE
     Dosage: UNK
     Route: 042

REACTIONS (1)
  - Drug ineffective [Unknown]
